FAERS Safety Report 9233054 (Version 1)
Quarter: 2013Q2

REPORT INFORMATION
  Report Type: Spontaneous
  Country: US (occurrence: None)
  Receive Date: 20130415
  Receipt Date: 20130415
  Transmission Date: 20140414
  Serious: Yes (Other)
  Sender: FDA-Public Use
  Company Number: None

PATIENT
  Age: 53 Year
  Sex: Female
  Weight: 73.03 kg

DRUGS (1)
  1. ENBREL [Suspect]
     Dates: start: 201301, end: 201303

REACTIONS (4)
  - Aura [None]
  - Photopsia [None]
  - Impaired work ability [None]
  - Impaired driving ability [None]
